FAERS Safety Report 4832687-3 (Version None)
Quarter: 2005Q4

REPORT INFORMATION
  Report Type: 
  Country: None (occurrence: None)
  Receive Date: 20051117
  Receipt Date: 20051117
  Transmission Date: 20060501
  Serious: No
  Sender: FDA-Public Use
  Company Number: None

PATIENT
  Sex: Male
  Weight: 65.7716 kg

DRUGS (2)
  1. ZOLEDRONIC ACID   4 MG/VIAL INJ, PWDR   NOVARTIS [Suspect]
     Indication: METASTASES TO BONE
     Dosage: 4MG  ONCE  IV
     Route: 042
     Dates: start: 20050505, end: 20050505
  2. ZOLEDRONIC ACID    4 MG/VIAL  INJ, PWDR     NOVARTIS [Suspect]
     Indication: METASTASES TO BONE
     Dosage: 3.5MG + 3MG   Q3 WEEKLY;  MONTHLY   IV
     Route: 042
     Dates: start: 20050727, end: 20050928

REACTIONS (1)
  - NEPHROPATHY TOXIC [None]
